FAERS Safety Report 6657540-4 (Version None)
Quarter: 2010Q1

REPORT INFORMATION
  Report Type: 
  Country: None (occurrence: None)
  Receive Date: 20100330
  Receipt Date: 20100318
  Transmission Date: 20100710
  Serious: Yes (Hospitalization)
  Sender: FDA-Public Use
  Company Number: JP-EISAI INC.-E3810-03596-SPO-JP

PATIENT
  Age: 52 Year
  Sex: Male

DRUGS (3)
  1. PARIET (RABEPRAZOLE) [Suspect]
     Route: 048
     Dates: start: 20100223, end: 20100227
  2. FLAGYL [Suspect]
     Route: 048
     Dates: start: 20100223, end: 20100227
  3. SAWACILLIN [Concomitant]
     Route: 048
     Dates: start: 20100223, end: 20100227

REACTIONS (1)
  - ENTEROCOLITIS HAEMORRHAGIC [None]
